FAERS Safety Report 4699002-X (Version None)
Quarter: 2005Q2

REPORT INFORMATION
  Report Type: 
  Country: None (occurrence: None)
  Receive Date: 20050623
  Receipt Date: 20050623
  Transmission Date: 20051028
  Serious: No
  Sender: FDA-Public Use
  Company Number: None

PATIENT
  Age: 76 Year
  Sex: Male

DRUGS (2)
  1. METFORMIN 1000 MG TABLET APOTEX [Suspect]
     Indication: DIABETES MELLITUS
     Dosage: 1000MG BY MOUTH TWICE A DAY
     Route: 048
     Dates: start: 20050301
  2. . [Concomitant]

REACTIONS (1)
  - BLOOD GLUCOSE INCREASED [None]
